FAERS Safety Report 10042527 (Version 1)
Quarter: 2014Q1

REPORT INFORMATION
  Report Type: Report from Study
  Country: US (occurrence: US)
  Receive Date: 20140327
  Receipt Date: 20140327
  Transmission Date: 20141002
  Serious: Yes (Hospitalization, Other)
  Sender: FDA-Public Use
  Company Number: US-ELI_LILLY_AND_COMPANY-US201403008501

PATIENT
  Sex: Male

DRUGS (2)
  1. OLANZAPINE [Suspect]
     Indication: PSYCHOTIC DISORDER
     Dosage: 15 MG, UNKNOWN
     Route: 048
  2. OLANZAPINE [Suspect]
     Dosage: 30 MG, QD
     Route: 065

REACTIONS (2)
  - Self-injurious ideation [Unknown]
  - Sedation [Unknown]
